FAERS Safety Report 4822033-3 (Version None)
Quarter: 2005Q4

REPORT INFORMATION
  Report Type: 
  Country: None (occurrence: None)
  Receive Date: 20051107
  Receipt Date: 20051024
  Transmission Date: 20060501
  Serious: Yes (Hospitalization)
  Sender: FDA-Public Use
  Company Number: JP-JNJFOC-20051005406

PATIENT
  Sex: Male

DRUGS (10)
  1. LEUSTATIN [Suspect]
     Dosage: DOSE NOT SPECIFIED
     Route: 042
  2. LEUSTATIN [Suspect]
     Route: 042
  3. ALLOPURINOL [Concomitant]
     Route: 048
  4. ACETAZOLAMIDE [Concomitant]
     Route: 048
  5. LAFUTIDINE [Concomitant]
     Route: 048
  6. PREDNISOLONE [Concomitant]
     Route: 048
  7. PREDNISOLONE [Concomitant]
     Route: 048
  8. SULFAMETHOXAZOLE + TRIMETHOPRIM [Concomitant]
     Route: 048
  9. SULFAMETHOXAZOLE + TRIMETHOPRIM [Concomitant]
     Route: 048
  10. REBAMIPIDE [Concomitant]
     Route: 048

REACTIONS (3)
  - CYSTITIS HAEMORRHAGIC [None]
  - IMMUNODEFICIENCY [None]
  - VIRAL INFECTION [None]
